FAERS Safety Report 15059067 (Version 2)
Quarter: 2018Q3

REPORT INFORMATION
  Report Type: Report from Study
  Country: DE (occurrence: DE)
  Receive Date: 20180625
  Receipt Date: 20180924
  Transmission Date: 20181010
  Serious: Yes (Hospitalization, Disabling, Other)
  Sender: FDA-Public Use
  Company Number: DE-BAUSCH-BL-2018-017309

PATIENT
  Age: 65 Year
  Sex: Male
  Weight: 103 kg

DRUGS (27)
  1. TORASEMID 1A PHARMA [Suspect]
     Active Substance: TORSEMIDE
     Indication: CARDIAC FAILURE CHRONIC
     Route: 048
     Dates: start: 20160212
  2. EPLERENONE. [Concomitant]
     Active Substance: EPLERENONE
     Indication: DIURETIC THERAPY
  3. TORASEMID 1A PHARMA [Suspect]
     Active Substance: TORSEMIDE
     Dosage: AT LUNCH TIME
     Route: 048
     Dates: start: 2012
  4. NALOXEGOL [Concomitant]
     Active Substance: NALOXEGOL
     Indication: PRODUCT USED FOR UNKNOWN INDICATION
     Route: 048
     Dates: start: 20171201
  5. NOVAMINSULFON [Concomitant]
     Active Substance: METAMIZOLE
     Indication: PRODUCT USED FOR UNKNOWN INDICATION
     Dosage: AS NEEDED, 4X35 DROPS, PRN
     Route: 048
     Dates: start: 2010
  6. EPLERENONE. [Concomitant]
     Active Substance: EPLERENONE
     Indication: CARDIAC DISORDER
     Route: 048
     Dates: start: 2017
  7. MOVANTIK [Concomitant]
     Active Substance: NALOXEGOL OXALATE
     Indication: LAXATIVE SUPPORTIVE CARE
     Route: 065
     Dates: start: 20170601
  8. BUDICORT [Concomitant]
     Indication: BRONCHIAL DISORDER
     Route: 048
     Dates: start: 1998
  9. DICLOFENAC [Suspect]
     Active Substance: DICLOFENAC
     Indication: PRODUCT USED FOR UNKNOWN INDICATION
     Route: 065
  10. OMEPRAZOL [Concomitant]
     Active Substance: OMEPRAZOLE
     Indication: GASTROINTESTINAL DISORDER
     Route: 048
     Dates: start: 2008
  11. SALBUTAMOL [Concomitant]
     Active Substance: ALBUTEROL
     Indication: PRODUCT USED FOR UNKNOWN INDICATION
     Route: 048
  12. DEKRISTOL [Concomitant]
     Active Substance: CHOLECALCIFEROL
     Indication: PRODUCT USED FOR UNKNOWN INDICATION
     Route: 048
     Dates: start: 2015
  13. ALLOPURINOL. [Concomitant]
     Active Substance: ALLOPURINOL
     Indication: GOUT
     Route: 048
     Dates: start: 2013
  14. TORASEMID 1A PHARMA [Suspect]
     Active Substance: TORSEMIDE
     Dosage: AT MORNING
     Route: 048
     Dates: start: 2016
  15. XELEVIA [Concomitant]
     Active Substance: SITAGLIPTIN PHOSPHATE
     Indication: BLOOD GLUCOSE
     Route: 048
     Dates: start: 2015
  16. FENTANYL. [Concomitant]
     Active Substance: FENTANYL
     Indication: PAIN
     Route: 048
     Dates: start: 20140601
  17. FENTANYL. [Concomitant]
     Active Substance: FENTANYL
     Route: 065
     Dates: start: 2013
  18. MOVICOL [Concomitant]
     Active Substance: POLYETHYLENE GLYCOL 3350\POTASSIUM CHLORIDE\SODIUM BICARBONATE\SODIUM CHLORIDE
     Indication: PRODUCT USED FOR UNKNOWN INDICATION
     Route: 065
     Dates: start: 2013, end: 201712
  19. VALSARTAN. [Concomitant]
     Active Substance: VALSARTAN
     Indication: BLOOD PRESSURE MEASUREMENT
     Route: 048
     Dates: start: 2016
  20. FORMATRIS [Concomitant]
     Active Substance: FORMOTEROL FUMARATE
     Indication: PRODUCT USED FOR UNKNOWN INDICATION
     Dosage: 1 PUFF IN MORNING, 1 PUFF IN EVENING
     Route: 055
     Dates: start: 1998
  21. TORASEMID 1A PHARMA [Suspect]
     Active Substance: TORSEMIDE
     Dosage: AS NEEDED
     Route: 048
     Dates: start: 20160212
  22. MORPHINE [Concomitant]
     Active Substance: MORPHINE
     Indication: PAIN
     Route: 065
  23. VERAPAMIL [Concomitant]
     Active Substance: VERAPAMIL HYDROCHLORIDE
     Indication: CARDIAC DISORDER
     Route: 048
     Dates: start: 2017
  24. COSENTYX [Concomitant]
     Active Substance: SECUKINUMAB
     Indication: RHEUMATIC DISORDER
     Dosage: 2 DF, QMO
     Route: 058
     Dates: start: 20170701
  25. PREDNISOLON [Concomitant]
     Active Substance: PREDNISOLONE
     Indication: RHEUMATIC DISORDER
     Route: 048
     Dates: start: 20170216
  26. TESTOPEL [Concomitant]
     Active Substance: TESTOSTERONE
     Indication: PRODUCT USED FOR UNKNOWN INDICATION
     Route: 048
     Dates: start: 2012
  27. IBUPROFEN. [Concomitant]
     Active Substance: IBUPROFEN
     Indication: PRODUCT USED FOR UNKNOWN INDICATION
     Route: 065
     Dates: start: 2002

REACTIONS (21)
  - Rheumatic disorder [Not Recovered/Not Resolved]
  - Drug intolerance [Unknown]
  - Dry mouth [Unknown]
  - Feeling cold [Not Recovered/Not Resolved]
  - Atrial fibrillation [Unknown]
  - Blood triglycerides increased [Unknown]
  - Syncope [Unknown]
  - Concomitant disease aggravated [Not Recovered/Not Resolved]
  - Weight fluctuation [Unknown]
  - Nocturia [Not Recovered/Not Resolved]
  - Fatigue [Unknown]
  - Dehydration [Unknown]
  - Nasopharyngitis [Not Recovered/Not Resolved]
  - Hyperhidrosis [Unknown]
  - Blood alkaline phosphatase increased [Unknown]
  - Pain [Unknown]
  - Pulmonary oedema [Recovered/Resolved]
  - Carpal tunnel syndrome [Unknown]
  - Atrial flutter [Unknown]
  - Muscle spasms [Unknown]
  - Temperature intolerance [Unknown]

NARRATIVE: CASE EVENT DATE: 201708
